FAERS Safety Report 23290786 (Version 3)
Quarter: 2023Q4

REPORT INFORMATION
  Report Type: Spontaneous
  Country: FR (occurrence: FR)
  Receive Date: 20231213
  Receipt Date: 20231227
  Transmission Date: 20240109
  Serious: Yes (Other)
  Sender: FDA-Public Use
  Company Number: FR-BRISTOL-MYERS SQUIBB COMPANY-2023-108479

PATIENT
  Age: 71 Year
  Sex: Male

DRUGS (12)
  1. DEXAMETHASONE [Suspect]
     Active Substance: DEXAMETHASONE
     Indication: Product used for unknown indication
     Dosage: 40.000MG
     Route: 048
     Dates: start: 20190506, end: 20190825
  2. REVLIMID [Suspect]
     Active Substance: LENALIDOMIDE
     Indication: Plasma cell myeloma
     Dosage: 25.000MG QD
     Route: 048
     Dates: start: 20190506, end: 20190526
  3. REVLIMID [Suspect]
     Active Substance: LENALIDOMIDE
     Dosage: 25.000MG QD
     Route: 048
     Dates: start: 20190506, end: 20190526
  4. REVLIMID [Suspect]
     Active Substance: LENALIDOMIDE
     Dosage: 25.000MG QD
     Route: 048
     Dates: start: 20190603, end: 20190623
  5. REVLIMID [Suspect]
     Active Substance: LENALIDOMIDE
     Dosage: 25.000MG QD
     Route: 048
     Dates: start: 20190701, end: 20190721
  6. REVLIMID [Suspect]
     Active Substance: LENALIDOMIDE
     Dosage: 25.000MG QD
     Route: 048
     Dates: start: 20190729, end: 20190818
  7. REVLIMID [Suspect]
     Active Substance: LENALIDOMIDE
     Dosage: UNK
     Route: 065
     Dates: start: 20190624, end: 20190630
  8. REVLIMID [Suspect]
     Active Substance: LENALIDOMIDE
     Dosage: UNK
     Route: 065
     Dates: start: 20190722, end: 20190728
  9. REVLIMID [Suspect]
     Active Substance: LENALIDOMIDE
     Dosage: UNK
     Route: 065
  10. ASPIRIN [Concomitant]
     Active Substance: ASPIRIN
     Indication: Product used for unknown indication
     Dosage: UNK
     Route: 065
  11. BACTRIM [Concomitant]
     Active Substance: SULFAMETHOXAZOLE\TRIMETHOPRIM
     Indication: Product used for unknown indication
     Dosage: UNK
     Route: 065
  12. VALACYCLOVIR HYDROCHLORIDE [Concomitant]
     Active Substance: VALACYCLOVIR HYDROCHLORIDE
     Indication: Product used for unknown indication
     Dosage: UNK
     Route: 065

REACTIONS (1)
  - Squamous cell carcinoma [Recovered/Resolved]

NARRATIVE: CASE EVENT DATE: 20230328
